FAERS Safety Report 5792025-9 (Version None)
Quarter: 2008Q2

REPORT INFORMATION
  Report Type: 
  Country: None (occurrence: None)
  Receive Date: 20080626
  Receipt Date: 20080617
  Transmission Date: 20081010
  Serious: Yes (Other)
  Sender: FDA-Public Use
  Company Number: PHEH2008US05458

PATIENT
  Sex: Female

DRUGS (1)
  1. TEKTURNA [Suspect]

REACTIONS (3)
  - DIARRHOEA [None]
  - NAUSEA [None]
  - VOMITING [None]
